FAERS Safety Report 10199865 (Version 1)
Quarter: 2014Q2

REPORT INFORMATION
  Report Type: Spontaneous
  Country: MX (occurrence: MX)
  Receive Date: 20140527
  Receipt Date: 20140527
  Transmission Date: 20141212
  Serious: No
  Sender: FDA-Public Use
  Company Number: MX-UCBSA-120521

PATIENT
  Age: 29 Year
  Sex: Male

DRUGS (2)
  1. VIMPAT [Suspect]
     Indication: EPILEPSY
     Route: 048
  2. PHENYTOIN [Concomitant]
     Indication: EPILEPSY

REACTIONS (1)
  - Syncope [Unknown]
